FAERS Safety Report 4283080-6 (Version None)
Quarter: 2004Q1

REPORT INFORMATION
  Report Type: 
  Country: None (occurrence: None)
  Receive Date: 20040129
  Receipt Date: 20040116
  Transmission Date: 20041129
  Serious: Yes (Hospitalization, Disabling, Other)
  Sender: FDA-Public Use
  Company Number: 2003126986

PATIENT
  Age: 20 Year
  Sex: Female

DRUGS (1)
  1. GEODON [Suspect]
     Indication: SCHIZOAFFECTIVE DISORDER
     Dosage: 200 MG (BID), ORAL
     Route: 048
     Dates: start: 20020901

REACTIONS (4)
  - DIFFICULTY IN WALKING [None]
  - GAIT DISTURBANCE [None]
  - PERONEAL NERVE PALSY [None]
  - TRISMUS [None]
